FAERS Safety Report 6580578-2 (Version None)
Quarter: 2010Q1

REPORT INFORMATION
  Report Type: 
  Country: None (occurrence: None)
  Receive Date: 20100212
  Receipt Date: 20100205
  Transmission Date: 20100710
  Serious: Yes (Hospitalization)
  Sender: FDA-Public Use
  Company Number: GB-PFIZER INC-2003040202

PATIENT
  Age: 70 Year
  Sex: Female
  Weight: 63.5 kg

DRUGS (3)
  1. LIPITOR [Suspect]
     Indication: BLOOD CHOLESTEROL INCREASED
     Dosage: 10 MG, 1X/DAY
     Route: 048
  2. ACETYLSALICYLIC ACID [Concomitant]
     Indication: MYOCARDIAL ISCHAEMIA
  3. URSODEOXYCHOLIC ACID [Concomitant]

REACTIONS (5)
  - BLOOD ALBUMIN DECREASED [None]
  - FATIGUE [None]
  - HEPATIC STEATOSIS [None]
  - LIVER FUNCTION TEST ABNORMAL [None]
  - MALAISE [None]
